FAERS Safety Report 16420353 (Version 2)
Quarter: 2019Q3

REPORT INFORMATION
  Report Type: Spontaneous
  Country: US (occurrence: US)
  Receive Date: 20190612
  Receipt Date: 20190819
  Transmission Date: 20191004
  Serious: Yes (Other)
  Sender: FDA-Public Use
  Company Number: US-SA-2019SA159187

PATIENT
  Age: 24 Year
  Sex: Female

DRUGS (2)
  1. SPIRONOLACTON [Concomitant]
     Active Substance: SPIRONOLACTONE
  2. DUPIXENT [Suspect]
     Active Substance: DUPILUMAB
     Indication: ECZEMA HERPETICUM
     Dosage: 300 MG, QOW
     Route: 058
     Dates: start: 20180627

REACTIONS (5)
  - Condition aggravated [Not Recovered/Not Resolved]
  - Upper respiratory tract infection [Not Recovered/Not Resolved]
  - Eczema herpeticum [Not Recovered/Not Resolved]
  - Headache [Not Recovered/Not Resolved]
  - Product use in unapproved indication [Not Recovered/Not Resolved]

NARRATIVE: CASE EVENT DATE: 20180627
